FAERS Safety Report 9890605 (Version 1)
Quarter: 2014Q1

REPORT INFORMATION
  Report Type: Spontaneous
  Country: US (occurrence: None)
  Receive Date: 20140210
  Receipt Date: 20140210
  Transmission Date: 20141002
  Serious: Yes (Other)
  Sender: FDA-Public Use
  Company Number: None

PATIENT
  Age: 17 Year
  Sex: Female
  Weight: 130.9 kg

DRUGS (1)
  1. ALPRAZOLAM [Suspect]
     Route: 048
     Dates: start: 20140129, end: 20140206

REACTIONS (2)
  - Dysphagia [None]
  - Sensation of foreign body [None]
